FAERS Safety Report 20947256 (Version 17)
Quarter: 2024Q3

REPORT INFORMATION
  Report Type: Report from Study
  Country: US (occurrence: US)
  Receive Date: 20220610
  Receipt Date: 20240716
  Transmission Date: 20241016
  Serious: Yes (Hospitalization, Other)
  Sender: JAZZ
  Company Number: US-JAZZ-2022-US-019723

PATIENT
  Sex: Female

DRUGS (16)
  1. XYREM [Suspect]
     Active Substance: SODIUM OXYBATE
     Indication: Narcolepsy
     Dosage: 3.75 GRAM, BID
  2. XYREM [Suspect]
     Active Substance: SODIUM OXYBATE
     Indication: Cataplexy
     Dosage: 3 GRAM, BID
     Dates: end: 202306
  3. XYREM [Suspect]
     Active Substance: SODIUM OXYBATE
     Indication: Somnolence
  4. LORZONE [Suspect]
     Active Substance: CHLORZOXAZONE
     Indication: Product used for unknown indication
     Dosage: UNK
  5. BUSPAR [Suspect]
     Active Substance: BUSPIRONE HYDROCHLORIDE
     Indication: Product used for unknown indication
     Dosage: UNK
  6. ALPRAZOLAM [Concomitant]
     Active Substance: ALPRAZOLAM
     Indication: Somnolence
     Dosage: UNK
     Dates: start: 20160101
  7. TRAZODONE [Concomitant]
     Active Substance: TRAZODONE HYDROCHLORIDE
     Indication: Product used for unknown indication
     Dosage: UNK
     Dates: start: 20180101
  8. RITALIN LA [Concomitant]
     Active Substance: METHYLPHENIDATE HYDROCHLORIDE
     Indication: Product used for unknown indication
     Dosage: 0000
     Dates: start: 20190401
  9. PANTOPRAZOLE [Concomitant]
     Active Substance: PANTOPRAZOLE
     Indication: Product used for unknown indication
     Dosage: 0000
     Dates: start: 20220401
  10. TEMAZEPAM [Concomitant]
     Active Substance: TEMAZEPAM
     Indication: Product used for unknown indication
     Dosage: UNK
     Dates: start: 20220201
  11. BACLOFEN [Concomitant]
     Active Substance: BACLOFEN
     Indication: Product used for unknown indication
     Dosage: 0000
     Dates: start: 20160101
  12. ACETAMINOPHEN\OXYCODONE HYDROCHLORIDE\OXYCODONE TEREPHTHALATE [Concomitant]
     Active Substance: ACETAMINOPHEN\OXYCODONE HYDROCHLORIDE\OXYCODONE TEREPHTHALATE
     Dosage: UNK
  13. MODAFINIL [Concomitant]
     Active Substance: MODAFINIL
  14. PREGABALIN [Concomitant]
     Active Substance: PREGABALIN
  15. HYDROMORPHONE [Concomitant]
     Active Substance: HYDROMORPHONE
  16. HIPREX DUO [Concomitant]

REACTIONS (16)
  - Burns third degree [Recovered/Resolved]
  - Illness [Unknown]
  - Surgery [Unknown]
  - Hallucination [Unknown]
  - Pulmonary embolism [Unknown]
  - Brain fog [Unknown]
  - Pain [Unknown]
  - Thinking abnormal [Unknown]
  - Somnolence [Unknown]
  - Food allergy [Unknown]
  - Migraine [Unknown]
  - Drug hypersensitivity [Unknown]
  - Drug effect less than expected [Unknown]
  - Product container issue [Unknown]
  - Product dose omission issue [Unknown]
  - Product administration interrupted [Unknown]
